FAERS Safety Report 16731349 (Version 2)
Quarter: 2020Q2

REPORT INFORMATION
  Report Type: Report from Study
  Country: US (occurrence: US)
  Receive Date: 20190822
  Receipt Date: 20200401
  Transmission Date: 20200713
  Serious: Yes (Hospitalization)
  Sender: FDA-Public Use
  Company Number: US-AMGEN-USANI2019132907

PATIENT
  Age: 84 Year
  Sex: Female
  Weight: 67.09 kg

DRUGS (36)
  1. CETIRIZINE [Concomitant]
     Active Substance: CETIRIZINE HYDROCHLORIDE
     Dosage: 10 MILLIGRAM
     Route: 048
     Dates: start: 2012, end: 20190816
  2. FAMOTIDINE. [Concomitant]
     Active Substance: FAMOTIDINE
     Dosage: 20 MILLIGRAM
     Route: 048
     Dates: start: 20190601, end: 20190603
  3. GABAPENTIN. [Concomitant]
     Active Substance: GABAPENTIN
     Dosage: 600 MILLIGRAM
     Route: 048
     Dates: start: 2017
  4. LEVOTHYROXINE. [Concomitant]
     Active Substance: LEVOTHYROXINE
     Dosage: 100 MICROGRAM
     Route: 048
     Dates: start: 1995
  5. NORMAL SALINE [Concomitant]
     Active Substance: SODIUM CHLORIDE
     Dosage: 500-1200 MILLILITER
     Route: 042
     Dates: start: 20190601, end: 20190604
  6. RESTORIL [Concomitant]
     Active Substance: TEMAZEPAM
     Dosage: 7.5 MILLIGRAM
     Route: 048
     Dates: start: 20190601, end: 20190604
  7. MAGNESIUM SULFATE. [Concomitant]
     Active Substance: MAGNESIUM SULFATE
     Dosage: 2 GRAM
     Route: 042
     Dates: start: 20190603, end: 20190605
  8. ZOFRAN [Concomitant]
     Active Substance: ONDANSETRON HYDROCHLORIDE
     Dosage: 10 MILLIGRAM
     Route: 042
     Dates: start: 20190523, end: 20190711
  9. BENADRYL [Concomitant]
     Active Substance: DIPHENHYDRAMINE HYDROCHLORIDE
     Dosage: 50 MILLIGRAM
     Route: 042
     Dates: start: 20190523, end: 20190711
  10. ALLOPURINOL. [Concomitant]
     Active Substance: ALLOPURINOL
     Dosage: 100 MILLIGRAM
     Route: 048
     Dates: start: 20190524, end: 20190710
  11. PROZAC [Concomitant]
     Active Substance: FLUOXETINE HYDROCHLORIDE
     Dosage: 20 MILLIGRAM
     Route: 048
     Dates: start: 1980, end: 20190605
  12. ADRIAMYCIN [Concomitant]
     Active Substance: DOXORUBICIN HYDROCHLORIDE
     Dosage: 62 TO 80 MILLIGRAM
     Dates: start: 20190523, end: 20190801
  13. VITAMIN B12 [Concomitant]
     Active Substance: CYANOCOBALAMIN
     Dosage: 1000 MICROGRAM
     Route: 048
     Dates: start: 2015, end: 20190711
  14. FLUCONAZOLE. [Concomitant]
     Active Substance: FLUCONAZOLE
     Dosage: 200 MILLIGRAM
     Route: 042
     Dates: start: 20190604, end: 20190605
  15. XANAX [Concomitant]
     Active Substance: ALPRAZOLAM
     Dosage: 0.5 MILLIGRAM
     Route: 048
     Dates: start: 1980
  16. CYTOXAN [Concomitant]
     Active Substance: CYCLOPHOSPHAMIDE
     Dosage: 940 TO 1200 MILLIGRAM
     Route: 042
     Dates: start: 20190523, end: 20190801
  17. PREDNISONE. [Concomitant]
     Active Substance: PREDNISONE
     Dosage: 50 MILLIGRAM
     Route: 048
     Dates: start: 20190523, end: 20190527
  18. TYLENOL [Concomitant]
     Active Substance: ACETAMINOPHEN
     Dosage: 50 TO 500 MILLIGRAM
     Route: 048
     Dates: start: 20190523, end: 20190711
  19. DIFLUCAN [Concomitant]
     Active Substance: FLUCONAZOLE
     Dosage: 100 MILLIGRAM
     Route: 048
     Dates: start: 20190603
  20. ONDASETRON [ONDANSETRON] [Concomitant]
     Dosage: 4 MILLIGRAM
     Route: 042
     Dates: start: 20190601, end: 20190605
  21. HEPARIN FLUSH [Concomitant]
     Active Substance: HEPARIN SODIUM
     Dosage: 100 UNK
     Route: 042
     Dates: start: 20190605, end: 20190605
  22. BACTRIM DS [Concomitant]
     Active Substance: SULFAMETHOXAZOLE\TRIMETHOPRIM
     Dosage: 800 MILLIGRAM
     Route: 048
     Dates: start: 20190711, end: 20190720
  23. RITUXAN [Concomitant]
     Active Substance: RITUXIMAB
     Dosage: 600 MILLIGRAM
     Route: 042
     Dates: start: 20190523, end: 20190523
  24. VINCRISTINE [Concomitant]
     Active Substance: VINCRISTINE
     Dosage: 1.7 TO 2 MILLIGRAM
     Route: 042
     Dates: start: 20190523, end: 20190801
  25. DECADRON [Concomitant]
     Active Substance: DEXAMETHASONE
     Dosage: 20 MILLIGRAM
     Route: 042
     Dates: start: 20190523, end: 20190711
  26. POTASSIUM CHLORIDE. [Concomitant]
     Active Substance: POTASSIUM CHLORIDE
     Dosage: 40 MILLIEQUIVALENT
     Route: 048
     Dates: start: 20190601, end: 20190605
  27. MORPHINE [Concomitant]
     Active Substance: MORPHINE
     Dosage: 1 MILLIGRAM
     Route: 042
     Dates: start: 20190603, end: 20190605
  28. MELOXICAM. [Concomitant]
     Active Substance: MELOXICAM
     Dosage: 15 MILLIGRAM
     Route: 048
     Dates: start: 2014
  29. VENTOLIN [Concomitant]
     Active Substance: ALBUTEROL SULFATE
     Dosage: 90 MILLIGRAM
     Route: 048
     Dates: start: 2006
  30. RITUXAN HYCELA [Concomitant]
     Active Substance: HYALURONIDASE (HUMAN RECOMBINANT)\RITUXIMAB
     Dosage: 1400 MILLIGRAM
     Route: 042
     Dates: start: 20190620, end: 20190801
  31. PEGFILGRASTIM [Suspect]
     Active Substance: PEGFILGRASTIM
     Indication: NEUTROPENIA
     Dosage: 6 MILLIGRAM
     Route: 058
     Dates: start: 20190528
  32. CLARITIN [Concomitant]
     Active Substance: LORATADINE
     Dosage: 10 MILLIGRAM
     Route: 048
     Dates: start: 20190524, end: 20190602
  33. TRAMADOL. [Concomitant]
     Active Substance: TRAMADOL
     Dosage: 25 MILLIGRAM
     Route: 048
     Dates: start: 20190601, end: 20190603
  34. LIPITOR [Concomitant]
     Active Substance: ATORVASTATIN CALCIUM
     Dosage: 20 MILLIGRAM
     Route: 048
     Dates: start: 2009
  35. PEPCID [Concomitant]
     Active Substance: FAMOTIDINE
     Dosage: 40 MILLIGRAM
     Route: 042
     Dates: start: 20190523, end: 20190711
  36. DILAUDID [Concomitant]
     Active Substance: HYDROMORPHONE HYDROCHLORIDE
     Dosage: 0.5 TO 1 MILLIGRAM
     Route: 042
     Dates: start: 20190601, end: 20190602

REACTIONS (2)
  - Cytopenia [Recovered/Resolved]
  - Cytopenia [Not Recovered/Not Resolved]

NARRATIVE: CASE EVENT DATE: 20190810
